FAERS Safety Report 12111714 (Version 1)
Quarter: 2016Q1

REPORT INFORMATION
  Report Type: Spontaneous
  Country: US (occurrence: US)
  Receive Date: 20160224
  Receipt Date: 20160224
  Transmission Date: 20160526
  Serious: No
  Sender: FDA-Public Use
  Company Number: US-JAZZ-2015-US-005432

PATIENT
  Age: 37 Year
  Sex: Female
  Weight: 77.98 kg

DRUGS (40)
  1. BUPIVACAINE HYDROCHLORIDE. [Suspect]
     Active Substance: BUPIVACAINE HYDROCHLORIDE
     Indication: LUMBOSACRAL RADICULOPATHY
  2. MORPHINE SULFATE. [Suspect]
     Active Substance: MORPHINE SULFATE
     Indication: MYOFASCIAL PAIN SYNDROME
  3. MORPHINE SULFATE. [Suspect]
     Active Substance: MORPHINE SULFATE
     Indication: OSTEOARTHRITIS
  4. MORPHINE SULFATE. [Suspect]
     Active Substance: MORPHINE SULFATE
     Indication: LUMBOSACRAL RADICULOPATHY
  5. LEVOTHYROXINE SODIUM. [Concomitant]
     Active Substance: LEVOTHYROXINE SODIUM
     Dosage: 75 ?G, UNK
  6. BUPIVACAINE HYDROCHLORIDE. [Suspect]
     Active Substance: BUPIVACAINE HYDROCHLORIDE
     Indication: OSTEOARTHRITIS
  7. BUTRANS [Concomitant]
     Active Substance: BUPRENORPHINE
     Dosage: 10 ?G, QH
  8. MORPHINE SULFATE. [Suspect]
     Active Substance: MORPHINE SULFATE
     Indication: BACK PAIN
  9. HYDROCODONE/ACETAMINOPHEN [Concomitant]
     Active Substance: ACETAMINOPHEN\HYDROCODONE
  10. OPANA [Concomitant]
     Active Substance: OXYMORPHONE HYDROCHLORIDE
     Dosage: 30 MG, UNK
  11. PERCOCET [Concomitant]
     Active Substance: ACETAMINOPHEN\OXYCODONE HYDROCHLORIDE
     Dosage: 10-325 MG, UNK
  12. FENTANYL. [Concomitant]
     Active Substance: FENTANYL
     Dosage: 100 ?G, QH
  13. PRIALT [Suspect]
     Active Substance: ZICONOTIDE ACETATE
     Indication: OSTEOARTHRITIS
     Dosage: 0.05 ?G, QH
     Route: 037
     Dates: start: 20150825, end: 20150901
  14. BUPIVACAINE HYDROCHLORIDE. [Suspect]
     Active Substance: BUPIVACAINE HYDROCHLORIDE
     Indication: PAIN
  15. BUPIVACAINE HYDROCHLORIDE. [Suspect]
     Active Substance: BUPIVACAINE HYDROCHLORIDE
     Indication: MYOFASCIAL PAIN SYNDROME
  16. OXYCODONE [Concomitant]
     Active Substance: OXYCODONE
     Dosage: 10 MG, UNK
  17. PRIALT [Suspect]
     Active Substance: ZICONOTIDE ACETATE
     Indication: POST LAMINECTOMY SYNDROME
     Dosage: UNK ?G, QH
     Route: 037
     Dates: start: 20150424, end: 2015
  18. BUPIVACAINE HYDROCHLORIDE. [Suspect]
     Active Substance: BUPIVACAINE HYDROCHLORIDE
     Indication: BACK PAIN
  19. LINZESS [Concomitant]
     Active Substance: LINACLOTIDE
     Dosage: 145 ?G, UNK
  20. MS CONTIN [Concomitant]
     Active Substance: MORPHINE SULFATE
     Dosage: 15 MG, TID
  21. FOLGARD [Concomitant]
     Dosage: 2.2-25-1 MG, UNK
  22. PRIALT [Suspect]
     Active Substance: ZICONOTIDE ACETATE
     Indication: BACK PAIN
     Dosage: UNK ?G, QH
     Route: 037
     Dates: start: 20150714, end: 20150730
  23. BUPIVACAINE HYDROCHLORIDE. [Suspect]
     Active Substance: BUPIVACAINE HYDROCHLORIDE
     Indication: SACROILIITIS
  24. MORPHINE SULFATE. [Suspect]
     Active Substance: MORPHINE SULFATE
     Indication: POST LAMINECTOMY SYNDROME
  25. MORPHINE SULFATE. [Suspect]
     Active Substance: MORPHINE SULFATE
     Indication: SACROILIITIS
  26. NUVIGIL [Concomitant]
     Active Substance: ARMODAFINIL
     Dosage: 150 MG, UNK
  27. MEDROL [Concomitant]
     Active Substance: METHYLPREDNISOLONE
     Dosage: 4 MG, UNK
  28. DIAZEPAM. [Concomitant]
     Active Substance: DIAZEPAM
     Dosage: 5 MG, UNK
  29. PRIALT [Suspect]
     Active Substance: ZICONOTIDE ACETATE
     Indication: MYOFASCIAL PAIN SYNDROME
     Dosage: UNK ?G, QH
     Route: 037
     Dates: start: 20150730, end: 20150811
  30. PRIALT [Suspect]
     Active Substance: ZICONOTIDE ACETATE
     Indication: SACROILIITIS
     Dosage: UNK ?G, QH
     Route: 037
     Dates: start: 20150818, end: 20160825
  31. PRIALT [Suspect]
     Active Substance: ZICONOTIDE ACETATE
     Indication: LUMBOSACRAL RADICULOPATHY
     Dosage: UNK ?G, QH
     Route: 037
     Dates: start: 20150915
  32. BUPIVACAINE HYDROCHLORIDE. [Suspect]
     Active Substance: BUPIVACAINE HYDROCHLORIDE
     Indication: POST LAMINECTOMY SYNDROME
  33. MORPHINE SULFATE. [Suspect]
     Active Substance: MORPHINE SULFATE
     Indication: PAIN
  34. MORPHINE SULFATE. [Suspect]
     Active Substance: MORPHINE SULFATE
     Indication: NEURITIS
  35. PRIALT [Suspect]
     Active Substance: ZICONOTIDE ACETATE
     Indication: PAIN
     Dosage: UNK ?G, QH
     Route: 037
     Dates: start: 2015, end: 2015
  36. PRIALT [Suspect]
     Active Substance: ZICONOTIDE ACETATE
     Indication: NEURITIS
     Dosage: UNK ?G, QH
     Route: 037
     Dates: start: 20150901, end: 20150915
  37. BUPIVACAINE HYDROCHLORIDE. [Suspect]
     Active Substance: BUPIVACAINE HYDROCHLORIDE
     Indication: NEURITIS
  38. FLEXERIL [Concomitant]
     Active Substance: CYCLOBENZAPRINE HYDROCHLORIDE
     Dosage: 10 MG, UNK
  39. OMEPRAZOLE. [Concomitant]
     Active Substance: OMEPRAZOLE
     Dosage: 20 MG, UNK
  40. MSIR [Suspect]
     Active Substance: MORPHINE SULFATE
     Dosage: 15 MG, Q4H

REACTIONS (7)
  - Drug withdrawal syndrome [Unknown]
  - Swelling [Unknown]
  - Underdose [Unknown]
  - Device issue [Unknown]
  - Muscular weakness [Unknown]
  - Burning sensation [Unknown]
  - Pain [Unknown]

NARRATIVE: CASE EVENT DATE: 20150331
